FAERS Safety Report 5097203-2 (Version None)
Quarter: 2006Q3

REPORT INFORMATION
  Report Type: 
  Country: None (occurrence: None)
  Receive Date: 20060906
  Receipt Date: 20060607
  Transmission Date: 20061208
  Serious: Yes (Hospitalization)
  Sender: FDA-Public Use
  Company Number: FR-ROCHE-451217

PATIENT
  Age: 52 Year
  Sex: Male
  Weight: 70 kg

DRUGS (4)
  1. PEGASYS [Suspect]
     Indication: HEPATITIS C
     Dosage: STRENGH AND FORMULATION REPORTED AS: INJECTABLE SOLUTION.
     Route: 058
     Dates: start: 20060310
  2. PEGASYS [Suspect]
     Route: 058
     Dates: end: 20060519
  3. COPEGUS [Suspect]
     Indication: HEPATITIS C
     Route: 048
     Dates: start: 20060310, end: 20060519
  4. SUBUTEX [Concomitant]
     Indication: DRUG THERAPY CHANGED
     Dosage: DOSAGE REPORTED AS 60 MG PER WEEK. INDICATION: DRUG ADDICTION SUBSTITUTION.

REACTIONS (13)
  - ANTI-HBC ANTIBODY POSITIVE [None]
  - C-REACTIVE PROTEIN INCREASED [None]
  - CELLULITIS [None]
  - DRUG HYPERSENSITIVITY [None]
  - EYE HAEMORRHAGE [None]
  - FEBRILE BONE MARROW APLASIA [None]
  - FUNGUS STOOL IDENTIFIED [None]
  - INFLAMMATION [None]
  - LYMPHADENOPATHY [None]
  - PETECHIAE [None]
  - PHARYNGOLARYNGEAL PAIN [None]
  - PLATELET DISORDER [None]
  - RASH ERYTHEMATOUS [None]
